FAERS Safety Report 6924741-7 (Version None)
Quarter: 2010Q3

REPORT INFORMATION
  Report Type: 
  Country: None (occurrence: None)
  Receive Date: 20100816
  Receipt Date: 20100809
  Transmission Date: 20110219
  Serious: No
  Sender: FDA-Public Use
  Company Number: US-BIOGENIDEC-2010BI027612

PATIENT
  Age: 43 Year
  Sex: Male

DRUGS (3)
  1. TYSABRI [Suspect]
     Indication: MULTIPLE SCLEROSIS
     Route: 042
     Dates: start: 20080304
  2. AMPYRA [Concomitant]
     Indication: MUSCULAR WEAKNESS
     Dates: start: 20100504, end: 20100509
  3. AMPYRA [Concomitant]
     Dates: start: 20100711, end: 20100725

REACTIONS (1)
  - MUSCULAR WEAKNESS [None]
